FAERS Safety Report 22653412 (Version 1)
Quarter: 2023Q2

REPORT INFORMATION
  Report Type: Spontaneous
  Country: US (occurrence: US)
  Receive Date: 20230629
  Receipt Date: 20230629
  Transmission Date: 20230721
  Serious: No
  Sender: FDA-Public Use
  Company Number: US-BAUSCHBL-2023BNL005514

PATIENT
  Age: 82 Year
  Sex: Female
  Weight: 68.1 kg

DRUGS (1)
  1. PROLENSA [Suspect]
     Active Substance: BROMFENAC SODIUM
     Indication: Product used for unknown indication
     Route: 047

REACTIONS (2)
  - Diplopia [Unknown]
  - Vision blurred [Not Recovered/Not Resolved]
